FAERS Safety Report 7356817-7 (Version None)
Quarter: 2011Q1

REPORT INFORMATION
  Report Type: 
  Country: None (occurrence: None)
  Receive Date: 20110317
  Receipt Date: 20110307
  Transmission Date: 20110831
  Serious: Yes (Hospitalization, Other)
  Sender: FDA-Public Use
  Company Number: US-AMGEN-USASP2011012856

PATIENT
  Age: 70 Year
  Sex: Male

DRUGS (4)
  1. ARANESP [Suspect]
     Dosage: 300 A?G, UNK
  2. ARANESP [Suspect]
     Indication: RENAL FAILURE
     Dosage: 40 A?G, UNK
     Dates: start: 20080701
  3. ARANESP [Suspect]
     Dosage: 100 A?G, UNK
  4. ARANESP [Suspect]
     Dosage: 60 A?G, UNK

REACTIONS (5)
  - ANAEMIA [None]
  - MYOCARDIAL INFARCTION [None]
  - HYPERTENSION [None]
  - CONVULSION [None]
  - DYSPNOEA [None]
